FAERS Safety Report 5796785-2 (Version None)
Quarter: 2008Q2

REPORT INFORMATION
  Report Type: 
  Country: None (occurrence: None)
  Receive Date: 20080627
  Receipt Date: 20080613
  Transmission Date: 20081010
  Serious: Yes (Other)
  Sender: FDA-Public Use
  Company Number: OPER20080123

PATIENT
  Age: 49 Year
  Sex: Male

DRUGS (6)
  1. OPANA ER [Suspect]
     Indication: PAIN
     Dosage: 1 TAB TID, PER ORAL
     Route: 048
     Dates: start: 20080325
  2. KEPPRA [Concomitant]
  3. DEPAKOTE [Concomitant]
  4. LIPITOR [Concomitant]
  5. FLOMAX [Concomitant]
  6. CIALIS [Concomitant]

REACTIONS (2)
  - INCORRECT ROUTE OF DRUG ADMINISTRATION [None]
  - TREATMENT NONCOMPLIANCE [None]
